FAERS Safety Report 24015179 (Version 2)
Quarter: 2024Q3

REPORT INFORMATION
  Report Type: Spontaneous
  Country: JP (occurrence: JP)
  Receive Date: 20240626
  Receipt Date: 20240927
  Transmission Date: 20241017
  Serious: Yes (Hospitalization, Other)
  Sender: MERCK
  Company Number: JP-MSD-M2024-24230

PATIENT
  Age: 54 Year
  Sex: Female

DRUGS (12)
  1. KEYTRUDA [Suspect]
     Active Substance: PEMBROLIZUMAB
     Indication: Cervix carcinoma stage I
     Dosage: 200 MILLIGRAM, Q3W
     Route: 041
  2. KEYTRUDA [Suspect]
     Active Substance: PEMBROLIZUMAB
     Indication: PD-L1 positive cancer
  3. PACLITAXEL [Suspect]
     Active Substance: PACLITAXEL
     Indication: Cervix carcinoma stage I
     Dosage: UNK
     Route: 065
  4. PACLITAXEL [Suspect]
     Active Substance: PACLITAXEL
     Indication: PD-L1 positive cancer
  5. CARBOPLATIN [Suspect]
     Active Substance: CARBOPLATIN
     Indication: Cervix carcinoma stage I
     Dosage: UNK
     Route: 065
  6. CARBOPLATIN [Suspect]
     Active Substance: CARBOPLATIN
     Indication: PD-L1 positive cancer
  7. BEVACIZUMAB [Suspect]
     Active Substance: BEVACIZUMAB
     Indication: Cervix carcinoma stage I
     Dosage: UNK
     Route: 065
  8. BEVACIZUMAB [Suspect]
     Active Substance: BEVACIZUMAB
     Indication: PD-L1 positive cancer
  9. MS TWICELON [Concomitant]
     Dosage: 120 MILLIGRAM
     Route: 065
  10. MS TWICELON [Concomitant]
     Dosage: 20 MILLIGRAM
     Route: 065
  11. MS TWICELON [Concomitant]
     Dosage: 80 MILLIGRAM
     Route: 065
  12. MS TWICELON [Concomitant]
     Dosage: 40 MILLIGRAM
     Route: 065

REACTIONS (2)
  - Immune-mediated cholangitis [Unknown]
  - Malignant neoplasm progression [Unknown]
